FAERS Safety Report 9391011 (Version 1)
Quarter: 2013Q3

REPORT INFORMATION
  Report Type: Spontaneous
  Country: US (occurrence: US)
  Receive Date: 20130709
  Receipt Date: 20130709
  Transmission Date: 20140515
  Serious: Yes (Hospitalization)
  Sender: FDA-Public Use
  Company Number: US-JNJFOC-20130618870

PATIENT
  Age: 91 Year
  Sex: Male
  Weight: 86.3 kg

DRUGS (12)
  1. XARELTO [Suspect]
     Indication: CEREBROVASCULAR ACCIDENT PROPHYLAXIS
     Dosage: DAILY
     Route: 048
  2. XARELTO [Suspect]
     Indication: ATRIAL FIBRILLATION
     Dosage: DAILY
     Route: 048
  3. ASA (ASPIRIN) [Suspect]
     Indication: PROPHYLAXIS
     Dosage: DAILY
     Route: 048
  4. CEFDINIR [Concomitant]
     Route: 065
  5. VIT D [Concomitant]
     Route: 065
  6. DONEPEZIL [Concomitant]
     Route: 065
  7. PRAVASTATIN [Concomitant]
     Route: 065
  8. VIT-D3 [Concomitant]
     Route: 065
  9. METOPROLOL SUCCINATE [Concomitant]
     Route: 065
  10. AMIODARONE [Concomitant]
     Route: 065
  11. ISOSORBIDE MONONITRATE [Concomitant]
     Route: 065
  12. AMLODIPINE [Concomitant]
     Route: 065

REACTIONS (2)
  - Lower gastrointestinal haemorrhage [Recovered/Resolved]
  - Haemorrhoids [Unknown]
